FAERS Safety Report 5961736-4 (Version None)
Quarter: 2008Q4

REPORT INFORMATION
  Report Type: 
  Country: None (occurrence: None)
  Receive Date: 20081121
  Receipt Date: 20081119
  Transmission Date: 20090506
  Serious: Yes (Other)
  Sender: FDA-Public Use
  Company Number: US-JNJFOC-20081103359

PATIENT
  Sex: Female

DRUGS (12)
  1. INVEGA [Suspect]
     Indication: BIPOLAR DISORDER
     Route: 048
  2. INVEGA [Suspect]
     Indication: DEPRESSION
     Route: 048
  3. LEXAPRO [Concomitant]
     Indication: BIPOLAR DISORDER
     Route: 048
  4. LAMICTAL [Concomitant]
     Route: 048
  5. LAMICTAL [Concomitant]
     Indication: BIPOLAR DISORDER
     Route: 048
  6. KLONOPIN [Concomitant]
     Indication: ANXIETY
     Route: 048
  7. ATENOL [Concomitant]
     Indication: BLOOD PRESSURE
     Route: 048
  8. SPIRONOLACTONE [Concomitant]
     Indication: POLYURIA
     Route: 048
  9. NEXIUM [Concomitant]
     Indication: GASTROOESOPHAGEAL REFLUX DISEASE
     Route: 048
  10. LIPITOR [Concomitant]
     Indication: BLOOD CHOLESTEROL INCREASED
     Route: 048
  11. ZYRTEC [Concomitant]
     Indication: MULTIPLE ALLERGIES
     Route: 048
  12. COUMADIN [Concomitant]
     Indication: ANTICOAGULANT THERAPY
     Route: 048

REACTIONS (7)
  - COUGH [None]
  - EYE IRRITATION [None]
  - HEADACHE [None]
  - MYALGIA [None]
  - OROPHARYNGEAL PAIN [None]
  - PYREXIA [None]
  - STEVENS-JOHNSON SYNDROME [None]
